FAERS Safety Report 16742968 (Version 2)
Quarter: 2019Q3

REPORT INFORMATION
  Report Type: Report from Study
  Country: None (occurrence: US)
  Receive Date: 20190827
  Receipt Date: 20190913
  Transmission Date: 20191005
  Serious: Yes (Death, Hospitalization)
  Sender: FDA-Public Use
  Company Number: US-ABBVIE-19K-163-2899581-00

PATIENT
  Age: 75 Year
  Sex: Female

DRUGS (1)
  1. HUMIRA [Suspect]
     Active Substance: ADALIMUMAB
     Indication: PSORIASIS
     Route: 058
     Dates: start: 2019, end: 20190528

REACTIONS (4)
  - Road traffic accident [Fatal]
  - Cervical vertebral fracture [Fatal]
  - Lung perforation [Fatal]
  - Spinal fracture [Fatal]

NARRATIVE: CASE EVENT DATE: 20190528
